FAERS Safety Report 22697415 (Version 18)
Quarter: 2025Q1

REPORT INFORMATION
  Report Type: Spontaneous
  Country: US (occurrence: US)
  Receive Date: 20230712
  Receipt Date: 20250221
  Transmission Date: 20250409
  Serious: Yes (Hospitalization, Other)
  Sender: PFIZER
  Company Number: US-PFIZER INC-PV202300120315

PATIENT
  Age: 61 Year
  Sex: Female
  Weight: 75.283 kg

DRUGS (15)
  1. TIKOSYN [Suspect]
     Active Substance: DOFETILIDE
     Indication: Heart rate irregular
     Dates: start: 2004
  2. TIKOSYN [Suspect]
     Active Substance: DOFETILIDE
     Dosage: 250 UG, 2X/DAY
     Dates: start: 2005
  3. TIKOSYN [Suspect]
     Active Substance: DOFETILIDE
     Dosage: 125MCG, 4 CAPSULES A DAY, 2 IN AM, 2 AT NIGHT
     Route: 048
  4. PRADAXA [Concomitant]
     Active Substance: DABIGATRAN ETEXILATE MESYLATE
     Indication: Blood disorder
     Dosage: 75 MG, 2X/DAY
     Dates: start: 2004
  5. PRADAXA [Concomitant]
     Active Substance: DABIGATRAN ETEXILATE MESYLATE
     Indication: Cerebrovascular accident
  6. POTASSIUM [Concomitant]
     Active Substance: POTASSIUM
  7. FLORIDRAL [Concomitant]
     Indication: Polyuria
  8. ROSUVASTATIN [Concomitant]
     Active Substance: ROSUVASTATIN
     Indication: Blood cholesterol abnormal
     Dosage: 10 MG, 1X/DAY
  9. METOPROL XL [Concomitant]
  10. JANUVIA [Concomitant]
     Active Substance: SITAGLIPTIN PHOSPHATE
     Indication: Diabetes mellitus
     Dosage: 50 MG, 1X/DAY
     Dates: start: 2020
  11. TOPROL XL [Concomitant]
     Active Substance: METOPROLOL SUCCINATE
     Indication: Hypertension
     Dosage: 1 DF, 2X/DAY
     Dates: start: 2004
  12. FUROSEMIDE [Concomitant]
     Active Substance: FUROSEMIDE
     Indication: Urinary incontinence
     Dosage: 80 MG, 1X/DAY
     Dates: start: 2005
  13. POTASSIUM CRESOLSULFONATE [Concomitant]
     Active Substance: POTASSIUM CRESOLSULFONATE
     Indication: Hypertension
     Dosage: 20 MG, 1X/DAY
     Dates: start: 2005
  14. OXAZEPAM [Concomitant]
     Active Substance: OXAZEPAM
     Indication: Sleep disorder
     Dosage: 30 MG, 1X/DAY
     Dates: start: 2004
  15. LUTEIN [Concomitant]
     Active Substance: LUTEIN
     Indication: Macular degeneration

REACTIONS (7)
  - Cardiac ablation [Unknown]
  - Implantable defibrillator insertion [Unknown]
  - Atrioventricular block [Unknown]
  - Dysphagia [Unknown]
  - Hypertension [Unknown]
  - Feeling hot [Unknown]
  - Dizziness [Unknown]

NARRATIVE: CASE EVENT DATE: 20050119
